FAERS Safety Report 15547497 (Version 3)
Quarter: 2019Q1

REPORT INFORMATION
  Report Type: Report from Study
  Country: US (occurrence: US)
  Receive Date: 20181024
  Receipt Date: 20190117
  Transmission Date: 20190417
  Serious: Yes (Hospitalization, Other)
  Sender: FDA-Public Use
  Company Number: US-ASTRAZENECA-2018SF19514

PATIENT
  Age: 741 Month
  Sex: Male

DRUGS (8)
  1. TESTOSTERONE. [Concomitant]
     Active Substance: TESTOSTERONE
  2. VITAMIN C [Concomitant]
     Active Substance: ASCORBIC ACID
  3. VALACICLOVIR [Concomitant]
     Active Substance: VALACYCLOVIR HYDROCHLORIDE
  4. CALQUENCE [Suspect]
     Active Substance: ACALABRUTINIB
     Indication: LYMPHOCYTIC LEUKAEMIA
     Route: 048
     Dates: start: 20180725
  5. VITAMIN B NOS [Concomitant]
     Active Substance: VITAMIN B
  6. IBUPROFEN. [Concomitant]
     Active Substance: IBUPROFEN
  7. THYROID [Concomitant]
     Active Substance: LEVOTHYROXINE\LIOTHYRONINE
  8. AZELASTINE. [Concomitant]
     Active Substance: AZELASTINE HYDROCHLORIDE

REACTIONS (6)
  - Squamous cell carcinoma of skin [Unknown]
  - Urinary tract infection [Unknown]
  - Product use in unapproved indication [Not Recovered/Not Resolved]
  - Prostatitis [Recovered/Resolved]
  - Infection [Unknown]
  - Off label use [Not Recovered/Not Resolved]

NARRATIVE: CASE EVENT DATE: 201809
